FAERS Safety Report 6094422-3 (Version None)
Quarter: 2009Q1

REPORT INFORMATION
  Report Type: 
  Country: None (occurrence: None)
  Receive Date: 20090219
  Receipt Date: 20090219
  Transmission Date: 20090719
  Serious: Yes (Hospitalization, Other)
  Sender: FDA-Public Use
  Company Number: None

PATIENT
  Age: 19 Year
  Sex: Male
  Weight: 77.1 kg

DRUGS (2)
  1. ADVATE [Suspect]
     Indication: HAEMORRHAGE
     Dosage: 2013 UNIT PRN IV BOLUS
     Route: 040
     Dates: start: 20090207, end: 20090212
  2. ADVATE [Suspect]
     Indication: HAEMORRHAGE
     Dosage: 2045 UNIT PRN IV BOLUS
     Route: 040
     Dates: start: 20090212, end: 20090216

REACTIONS (6)
  - CONVULSION [None]
  - DYSGEUSIA [None]
  - DYSPNOEA [None]
  - HALLUCINATION [None]
  - HEART RATE INCREASED [None]
  - TREMOR [None]
